FAERS Safety Report 23721403 (Version 1)
Quarter: 2024Q2

REPORT INFORMATION
  Report Type: Spontaneous
  Country: US (occurrence: US)
  Receive Date: 20240409
  Receipt Date: 20240409
  Transmission Date: 20240715
  Serious: Yes (Other)
  Sender: FDA-Public Use
  Company Number: US-BRISTOL-MYERS SQUIBB COMPANY-2024-054063

PATIENT
  Age: 62 Year
  Sex: Male

DRUGS (3)
  1. SPRYCEL [Suspect]
     Active Substance: DASATINIB
     Indication: Chronic myeloid leukaemia
     Route: 048
     Dates: start: 202312
  2. SPRYCEL [Suspect]
     Active Substance: DASATINIB
     Indication: Nausea
  3. SPRYCEL [Suspect]
     Active Substance: DASATINIB
     Indication: Vomiting

REACTIONS (1)
  - Neuropathy peripheral [Unknown]
